FAERS Safety Report 8745653 (Version 2)
Quarter: 2012Q4

REPORT INFORMATION
  Report Type: 
  Country: US (occurrence: US)
  Receive Date: 20120826
  Receipt Date: 20120918
  Transmission Date: 20130627
  Serious: Yes (Disabling)
  Sender: FDA-Public Use
  Company Number: US-B.I. PHARMACEUTICALS,INC./RIDGEFIELD-2012-BP-20227BP

PATIENT
  Age: 71 Year
  Sex: Male
  Weight: 81.65 kg

DRUGS (3)
  1. SPIRIVA [Suspect]
     Dosage: 18 mcg
     Route: 055
     Dates: start: 20120614, end: 20120704
  2. PLAVIX [Concomitant]
  3. ASPIRIN [Concomitant]

REACTIONS (4)
  - Haemoptysis [Recovered/Resolved]
  - Dry mouth [Unknown]
  - Cough [Unknown]
  - Lung neoplasm [Unknown]
